FAERS Safety Report 4424484-8 (Version None)
Quarter: 2004Q3

REPORT INFORMATION
  Report Type: 
  Country: None (occurrence: None)
  Receive Date: 20040812
  Receipt Date: 20040722
  Transmission Date: 20050211
  Serious: Yes (Hospitalization)
  Sender: FDA-Public Use
  Company Number: PL-GLAXOSMITHKLINE-B0340473A

PATIENT
  Age: 80 Year
  Sex: Female
  Weight: 63.5 kg

DRUGS (4)
  1. ROPINIROLE [Suspect]
     Indication: PARKINSON'S DISEASE
     Route: 048
     Dates: start: 20040625
  2. MADOPAR [Concomitant]
     Indication: PARKINSON'S DISEASE
     Dates: start: 20040225, end: 20040716
  3. CAVINTON [Concomitant]
  4. AMANTADINE HCL [Concomitant]

REACTIONS (3)
  - DIABETES MELLITUS [None]
  - LOSS OF CONSCIOUSNESS [None]
  - TRANSIENT ISCHAEMIC ATTACK [None]
